FAERS Safety Report 5119151-1 (Version None)
Quarter: 2006Q3

REPORT INFORMATION
  Report Type: 
  Country: None (occurrence: None)
  Receive Date: 20060929
  Receipt Date: 20060929
  Transmission Date: 20061208
  Serious: Yes (Hospitalization)
  Sender: FDA-Public Use
  Company Number: None

PATIENT
  Age: 85 Year
  Sex: Male
  Weight: 68 kg

DRUGS (8)
  1. CAPTOPRIL [Suspect]
     Indication: CARDIAC FAILURE CONGESTIVE
     Dosage: 12.5 MG BID PO
     Route: 048
  2. WARFARIN [Concomitant]
  3. ASPIRIN [Concomitant]
  4. LASIX [Concomitant]
  5. ISOSORBIDE DINITRATE [Concomitant]
  6. METOPROLOL TARTRATE [Concomitant]
  7. RANITIDINE [Concomitant]
  8. LORCET-HD [Concomitant]

REACTIONS (7)
  - AZOTAEMIA [None]
  - HYPERKALAEMIA [None]
  - HYPERVOLAEMIA [None]
  - HYPONATRAEMIA [None]
  - MENTAL STATUS CHANGES [None]
  - RENAL FAILURE ACUTE [None]
  - SOMNOLENCE [None]
